FAERS Safety Report 17573065 (Version 1)
Quarter: 2020Q1

REPORT INFORMATION
  Report Type: Spontaneous
  Country: GB (occurrence: GB)
  Receive Date: 20200323
  Receipt Date: 20200323
  Transmission Date: 20200409
  Serious: Yes (Death)
  Sender: FDA-Public Use
  Company Number: NVSC2020GB081767

PATIENT
  Age: 17 Year
  Sex: Female

DRUGS (6)
  1. BROVANEXINE [Suspect]
     Active Substance: BROVANEXINE
     Indication: CYSTIC FIBROSIS
     Dosage: UNK
     Route: 042
  2. MEROPENEM. [Suspect]
     Active Substance: MEROPENEM
     Indication: CYSTIC FIBROSIS
     Dosage: UNK
     Route: 042
  3. SULFAMETHOXAZOLE;TRIMETHOPRIM [Suspect]
     Active Substance: SULFAMETHOXAZOLE\TRIMETHOPRIM
  4. CLOFAZIMINE [Suspect]
     Active Substance: CLOFAZIMINE
     Indication: CYSTIC FIBROSIS
     Dosage: UNK
     Route: 042
  5. PIPERACILLIN. [Suspect]
     Active Substance: PIPERACILLIN SODIUM
     Indication: CYSTIC FIBROSIS
     Dosage: UNK
     Route: 042
  6. AMIKACIN. [Suspect]
     Active Substance: AMIKACIN
     Indication: CYSTIC FIBROSIS
     Dosage: UNK
     Route: 065

REACTIONS (5)
  - Hepatic failure [Fatal]
  - Enteritis [Fatal]
  - Product use in unapproved indication [Unknown]
  - Renal failure [Fatal]
  - Nausea [Fatal]
